FAERS Safety Report 20456059 (Version 1)
Quarter: 2022Q1

REPORT INFORMATION
  Report Type: Spontaneous
  Country: US (occurrence: None)
  Receive Date: 20220210
  Receipt Date: 20220210
  Transmission Date: 20220424
  Serious: Yes (Other)
  Sender: FDA-Public Use
  Company Number: None

PATIENT
  Age: 57 Year
  Sex: Male
  Weight: 118.84 kg

DRUGS (1)
  1. SOTROVIMAB [Suspect]
     Active Substance: SOTROVIMAB
     Indication: COVID-19
     Dosage: 500MG ONE TIME IV?
     Route: 042
     Dates: start: 20220201, end: 20220201

REACTIONS (5)
  - Atrial fibrillation [None]
  - Hypotension [None]
  - Infusion related reaction [None]
  - Blood magnesium decreased [None]
  - Dehydration [None]

NARRATIVE: CASE EVENT DATE: 20220201
